FAERS Safety Report 13555510 (Version 1)
Quarter: 2017Q2

REPORT INFORMATION
  Report Type: Spontaneous
  Country: DE (occurrence: DE)
  Receive Date: 20170517
  Receipt Date: 20170517
  Transmission Date: 20170830
  Serious: Yes (Other)
  Sender: FDA-Public Use
  Company Number: DE-ASCEND THERAPEUTICS-2020892

PATIENT
  Age: 56 Year
  Sex: Female

DRUGS (5)
  1. ESTROGEL [Suspect]
     Active Substance: ESTRADIOL
     Indication: HORMONE REPLACEMENT THERAPY
     Route: 065
     Dates: start: 201702, end: 20170323
  2. ESTROGEL [Suspect]
     Active Substance: ESTRADIOL
     Route: 065
     Dates: start: 20170326, end: 20170326
  3. ESTROGEL [Suspect]
     Active Substance: ESTRADIOL
     Route: 065
     Dates: start: 20170327, end: 201704
  4. UTROGEST (PROGESTERONE) [Suspect]
     Active Substance: PROGESTERONE
     Route: 065
     Dates: start: 201702, end: 20170324
  5. UTROGEST (PROGESTERONE) [Suspect]
     Active Substance: PROGESTERONE
     Route: 065

REACTIONS (9)
  - Malaise [Unknown]
  - Sleep disorder [Unknown]
  - Decreased appetite [Unknown]
  - Fluid retention [Recovered/Resolved]
  - Polyuria [None]
  - Flatulence [Unknown]
  - Polyuria [Not Recovered/Not Resolved]
  - Fatigue [Unknown]
  - Polyuria [Not Recovered/Not Resolved]

NARRATIVE: CASE EVENT DATE: 2017
